FAERS Safety Report 8041542-X (Version None)
Quarter: 2012Q1

REPORT INFORMATION
  Report Type: 
  Country: None (occurrence: None)
  Receive Date: 20120112
  Receipt Date: 20120109
  Transmission Date: 20120608
  Serious: Yes (Hospitalization, Other)
  Sender: FDA-Public Use
  Company Number: US-PFIZER INC-2011135696

PATIENT
  Sex: Female
  Weight: 129.25 kg

DRUGS (4)
  1. CALCIUM [Concomitant]
     Dosage: UNK
  2. INSULIN [Concomitant]
     Indication: DIABETES MELLITUS
     Dosage: UNK, 2X/DAY
  3. NEURONTIN [Suspect]
     Indication: NEUROPATHY PERIPHERAL
     Dosage: 800 MG, 3X/DAY
     Route: 048
     Dates: end: 20111229
  4. LIPITOR [Suspect]
     Indication: BLOOD CHOLESTEROL INCREASED
     Dosage: UNK
     Route: 048

REACTIONS (8)
  - FALL [None]
  - RASH [None]
  - KIDNEY INFECTION [None]
  - GAIT DISTURBANCE [None]
  - INSOMNIA [None]
  - HEAD INJURY [None]
  - LIMB INJURY [None]
  - PAIN IN EXTREMITY [None]
